FAERS Safety Report 12840498 (Version 1)
Quarter: 2016Q4

REPORT INFORMATION
  Report Type: Spontaneous
  Country: US (occurrence: US)
  Receive Date: 20161012
  Receipt Date: 20161012
  Transmission Date: 20170207
  Serious: No
  Sender: FDA-Public Use
  Company Number: US-SHIRE-US201613360

PATIENT
  Sex: Female

DRUGS (1)
  1. XIIDRA [Suspect]
     Active Substance: LIFITEGRAST
     Indication: DRY EYE
     Dosage: 1 GTT, 2X/DAY:BID (IN EACH EYE)
     Route: 047
     Dates: start: 20160825

REACTIONS (2)
  - Visual acuity reduced [Not Recovered/Not Resolved]
  - Lacrimation decreased [Not Recovered/Not Resolved]

NARRATIVE: CASE EVENT DATE: 20160826
